FAERS Safety Report 12700185 (Version 1)
Quarter: 2016Q3

REPORT INFORMATION
  Report Type: Spontaneous
  Country: US (occurrence: US)
  Receive Date: 20160830
  Receipt Date: 20160830
  Transmission Date: 20161109
  Serious: No
  Sender: FDA-Public Use
  Company Number: US-SHIRE-US201610423

PATIENT
  Age: 37 Year
  Sex: Female
  Weight: 56.69 kg

DRUGS (3)
  1. SUBOXONE [Concomitant]
     Active Substance: BUPRENORPHINE HYDROCHLORIDE\NALOXONE HYDROCHLORIDE
     Indication: DRUG DEPENDENCE
     Dosage: 12 MG, 1X/DAY:QD
     Route: 048
  2. VYVANSE [Suspect]
     Active Substance: LISDEXAMFETAMINE DIMESYLATE
     Dosage: UNK UNK, 1X/DAY:QD
     Route: 048
  3. VYVANSE [Suspect]
     Active Substance: LISDEXAMFETAMINE DIMESYLATE
     Indication: ATTENTION DEFICIT/HYPERACTIVITY DISORDER
     Dosage: 50 MG, 1X/DAY:QD
     Route: 048
     Dates: start: 20160803

REACTIONS (5)
  - Product quality issue [Unknown]
  - Fatigue [Recovered/Resolved]
  - Drug ineffective [Not Recovered/Not Resolved]
  - Migraine [Recovered/Resolved]
  - Vomiting [Recovered/Resolved]

NARRATIVE: CASE EVENT DATE: 201608
